FAERS Safety Report 20546484 (Version 1)
Quarter: 2022Q1

REPORT INFORMATION
  Report Type: Spontaneous
  Country: US (occurrence: US)
  Receive Date: 20220303
  Receipt Date: 20220303
  Transmission Date: 20220423
  Serious: No
  Sender: FDA-Public Use
  Company Number: US-009507513-2202USA004551

PATIENT
  Sex: Female

DRUGS (1)
  1. MOLNUPIRAVIR [Suspect]
     Active Substance: MOLNUPIRAVIR
     Dosage: UNK
     Route: 048
     Dates: start: 20220211

REACTIONS (3)
  - Rash pruritic [Unknown]
  - Rash macular [Unknown]
  - Vulvovaginal rash [Unknown]

NARRATIVE: CASE EVENT DATE: 20220214
